FAERS Safety Report 4300916-0 (Version None)
Quarter: 2004Q1

REPORT INFORMATION
  Report Type: 
  Country: None (occurrence: None)
  Receive Date: 20040219
  Receipt Date: 20040211
  Transmission Date: 20041129
  Serious: Yes (Hospitalization)
  Sender: FDA-Public Use
  Company Number: 2004CG00287

PATIENT
  Age: 57 Year
  Sex: Male
  Weight: 84 kg

DRUGS (4)
  1. ZESTRIL [Suspect]
     Indication: DIABETIC NEPHROPATHY
     Dates: start: 20031217, end: 20040109
  2. TAZOCILLINE [Suspect]
     Indication: CELLULITIS
     Dates: start: 20031223, end: 20040109
  3. CIFLOX [Concomitant]
  4. NOVONORM [Concomitant]

REACTIONS (9)
  - ARTHRALGIA [None]
  - ASTHENIA [None]
  - BLOOD CREATININE INCREASED [None]
  - BLOOD PRESSURE DECREASED [None]
  - C-REACTIVE PROTEIN INCREASED [None]
  - CHILLS [None]
  - HYPERSENSITIVITY [None]
  - PANCYTOPENIA [None]
  - PYREXIA [None]
